FAERS Safety Report 23491432 (Version 1)
Quarter: 2024Q1

REPORT INFORMATION
  Report Type: Spontaneous
  Country: US (occurrence: None)
  Receive Date: 20240207
  Receipt Date: 20240207
  Transmission Date: 20240409
  Serious: No
  Sender: FDA-Public Use
  Company Number: US-ROCHE-3432232

PATIENT
  Sex: Male

DRUGS (2)
  1. NUTROPIN AQ [Suspect]
     Active Substance: SOMATROPIN
     Indication: Product used for unknown indication
     Dosage: NUSPIN 10MG/2ML
     Route: 058
  2. NUTROPIN AQ [Suspect]
     Active Substance: SOMATROPIN

REACTIONS (5)
  - Mood swings [Unknown]
  - Lethargy [Unknown]
  - Anxiety [Unknown]
  - Performance status decreased [Unknown]
  - Disturbance in attention [Unknown]
